FAERS Safety Report 7963770-1 (Version None)
Quarter: 2011Q4

REPORT INFORMATION
  Report Type: 
  Country: None (occurrence: None)
  Receive Date: 20111205
  Receipt Date: 20111117
  Transmission Date: 20120403
  Serious: Yes (Hospitalization)
  Sender: FDA-Public Use
  Company Number: 1000025774

PATIENT
  Age: 86 Year
  Sex: Female

DRUGS (8)
  1. IXPRIM (TRAMADOL, ACETAMINOPHEN) (37.5 MILLIGRAM, TABLETS) [Suspect]
     Dosage: 3 DF (1 DOSAGE FORMS, 3 IN 1 D), ORAL
     Route: 048
     Dates: start: 20111006
  2. MEPROBAMATE/ACEPROMETAZINE (MEPROBAMATE, ACEPROMETAZINE) [Suspect]
  3. TARDYFERON (FERROUS SULFATE) (TABLETS) (FERROUS SULFATE) [Concomitant]
  4. RISPERDAL [Suspect]
     Dosage: 3 DF (1 DOSAGE FORMS, 3 IN 1 D), ORAL
     Route: 048
  5. CALCIPARINE [Concomitant]
  6. MEMANTINE HYDROCHLORIDE [Suspect]
     Dosage: 10 MG (10 MG, 1 IN 1 D), ORAL
     Route: 048
  7. NOVONORM (REPAGLINIDE) (TABLETS) (REPAGLINIDE) [Concomitant]
  8. THERALENE (ALIMEMAZINE TARTRATE) (4 PERCENT, DROPS (FOR ORAL USE)) [Suspect]
     Dosage: 10 GTT (10 GTT, 1 IN 1 D), ORAL
     Route: 048
     Dates: end: 20110927

REACTIONS (14)
  - HAEMOGLOBIN DECREASED [None]
  - INJURY [None]
  - FEMORAL NECK FRACTURE [None]
  - CONFUSIONAL STATE [None]
  - HEADACHE [None]
  - CONTUSION [None]
  - LIMB DEFORMITY [None]
  - CREATININE RENAL CLEARANCE DECREASED [None]
  - DRUG INTERACTION [None]
  - DROP ATTACKS [None]
  - FALL [None]
  - BLOOD CREATININE INCREASED [None]
  - LIMB INJURY [None]
  - ANAEMIA [None]
